FAERS Safety Report 18745566 (Version 4)
Quarter: 2021Q1

REPORT INFORMATION
  Report Type: Report from Study
  Country: BR (occurrence: BR)
  Receive Date: 20210115
  Receipt Date: 20210325
  Transmission Date: 20210419
  Serious: Yes (Disabling)
  Sender: FDA-Public Use
  Company Number: NVSC2021BR006677

PATIENT
  Sex: Male

DRUGS (2)
  1. RIVASTIGMINE. [Suspect]
     Active Substance: RIVASTIGMINE
     Indication: PRODUCT USED FOR UNKNOWN INDICATION
     Dosage: 1.5 DF (STARTED 5 YEARS AGO)
     Route: 065
     Dates: end: 202004
  2. EXELON [Suspect]
     Active Substance: RIVASTIGMINE TARTRATE
     Indication: PRODUCT USED FOR UNKNOWN INDICATION
     Dosage: 1 DF, QD (4.6 MG, QD PATCH 5 (CM2), 9 MG RIVASTIGMINE BASE)
     Route: 065
     Dates: start: 202004

REACTIONS (8)
  - Drug ineffective [Recovered/Resolved]
  - Abdominal discomfort [Recovered/Resolved]
  - Mood altered [Recovered/Resolved]
  - Overweight [Unknown]
  - Hypokinesia [Recovered/Resolved]
  - Gait disturbance [Recovered/Resolved]
  - Product adhesion issue [Unknown]
  - Medication error [Unknown]
